FAERS Safety Report 23718179 (Version 1)
Quarter: 2024Q2

REPORT INFORMATION
  Report Type: Spontaneous
  Country: CA (occurrence: None)
  Receive Date: 20240408
  Receipt Date: 20240408
  Transmission Date: 20240716
  Serious: Yes (Life-Threatening, Hospitalization, Other)
  Sender: FDA-Public Use
  Company Number: CA-MLMSERVICE-20240327-4917352-1

PATIENT
  Age: 40 Year
  Sex: Male

DRUGS (4)
  1. METHOTREXATE [Suspect]
     Active Substance: METHOTREXATE
     Indication: Immunosuppressant drug therapy
  2. METHOTREXATE [Suspect]
     Active Substance: METHOTREXATE
     Indication: Cardiac sarcoidosis
  3. PREDNISONE [Suspect]
     Active Substance: PREDNISONE
     Indication: Immunosuppressant drug therapy
  4. PREDNISONE [Suspect]
     Active Substance: PREDNISONE
     Indication: Cardiac sarcoidosis

REACTIONS (3)
  - Ventricular fibrillation [Recovered/Resolved]
  - Ventricular tachycardia [Recovered/Resolved]
  - Product use in unapproved indication [Unknown]
